FAERS Safety Report 18993684 (Version 1)
Quarter: 2021Q1

REPORT INFORMATION
  Report Type: Report from Study
  Country: US (occurrence: US)
  Receive Date: 20210310
  Receipt Date: 20210310
  Transmission Date: 20210420
  Serious: Yes (Hospitalization)
  Sender: FDA-Public Use
  Company Number: US-BAYER-2021-091341

PATIENT
  Sex: Female
  Weight: 92.97 kg

DRUGS (1)
  1. STIVARGA [Suspect]
     Active Substance: REGORAFENIB
     Dosage: 160 MG DAILY DAYS 1?21 OF 28 DAY CYCLE
     Route: 048
     Dates: start: 20201031, end: 20210224

REACTIONS (3)
  - Palmar-plantar erythrodysaesthesia syndrome [Unknown]
  - Solar lentigo [Unknown]
  - Hospitalisation [Unknown]
